FAERS Safety Report 6388536-8 (Version None)
Quarter: 2009Q4

REPORT INFORMATION
  Report Type: 
  Country: None (occurrence: None)
  Receive Date: 20091005
  Receipt Date: 20090922
  Transmission Date: 20100525
  Serious: Yes (Life-Threatening, Hospitalization)
  Sender: FDA-Public Use
  Company Number: GB-ROCHE-643535

PATIENT
  Sex: Female
  Weight: 55.5 kg

DRUGS (1)
  1. TAMIFLU [Suspect]
     Route: 048
     Dates: start: 20090707, end: 20090709

REACTIONS (13)
  - DIARRHOEA [None]
  - HEPATIC FAILURE [None]
  - HYPOTENSION [None]
  - INFLUENZA [None]
  - KIDNEY INFECTION [None]
  - MALAISE [None]
  - OEDEMA PERIPHERAL [None]
  - OROPHARYNGEAL PAIN [None]
  - PHARYNGITIS [None]
  - PNEUMONIA [None]
  - RASH [None]
  - RESPIRATORY DISORDER [None]
  - SYNCOPE [None]
